FAERS Safety Report 18852757 (Version 1)
Quarter: 2021Q1

REPORT INFORMATION
  Report Type: Spontaneous
  Country: US (occurrence: US)
  Receive Date: 20210205
  Receipt Date: 20210205
  Transmission Date: 20210420
  Serious: Yes (Hospitalization)
  Sender: FDA-Public Use
  Company Number: US-ASTRAZENECA-2021A025185

PATIENT
  Age: 69 Year
  Sex: Female

DRUGS (3)
  1. ALBUTEROL. [Concomitant]
     Active Substance: ALBUTEROL
  2. SEREVENT DISKUS [Concomitant]
     Active Substance: SALMETEROL XINAFOATE
  3. PULMICORT TURBUHALER [Suspect]
     Active Substance: BUDESONIDE
     Indication: ASTHMA
     Dosage: THREE INHALERS A DAY
     Route: 055
     Dates: start: 2000

REACTIONS (7)
  - Heart rate irregular [Unknown]
  - Immunodeficiency [Unknown]
  - Asthma [Unknown]
  - Allergy to animal [Unknown]
  - Ill-defined disorder [Unknown]
  - Fluid retention [Unknown]
  - Cardiac disorder [Unknown]
